FAERS Safety Report 7024287-4 (Version None)
Quarter: 2010Q4

REPORT INFORMATION
  Report Type: 
  Country: None (occurrence: None)
  Receive Date: 20101001
  Receipt Date: 20100920
  Transmission Date: 20110411
  Serious: Yes (Other)
  Sender: FDA-Public Use
  Company Number: US-SANOFI-AVENTIS-2010SA037244

PATIENT
  Age: 67 Year
  Sex: Female
  Weight: 76.64 kg

DRUGS (20)
  1. PLAVIX [Suspect]
     Route: 048
     Dates: start: 20060501
  2. PLAVIX [Suspect]
     Route: 048
     Dates: start: 20060501
  3. PRILOSEC [Suspect]
     Route: 048
     Dates: end: 20100101
  4. PRILOSEC [Suspect]
     Route: 048
  5. ZOLOFT [Concomitant]
  6. PREDNISONE [Concomitant]
  7. MACROBID [Concomitant]
  8. PRIMIDONE [Concomitant]
  9. ROBAXIN [Concomitant]
  10. LEVOTHYROXINE SODIUM [Concomitant]
  11. CRESTOR [Concomitant]
  12. ESTROGEN NOS [Concomitant]
  13. NAPROXEN [Concomitant]
  14. FENTANYL [Concomitant]
     Dosage: EVERY 4-5 DAYS
  15. REQUIP [Concomitant]
  16. SEROQUEL [Concomitant]
  17. NITROGLYCERIN [Concomitant]
  18. ZANTAC [Concomitant]
  19. VITAMIN B-12 [Concomitant]
  20. CARDIZEM [Concomitant]

REACTIONS (9)
  - ASTHENIA [None]
  - CHEST PAIN [None]
  - CORONARY ARTERY OCCLUSION [None]
  - DEVICE OCCLUSION [None]
  - DIZZINESS [None]
  - DRUG INEFFECTIVE [None]
  - DRUG INTERACTION [None]
  - DYSPNOEA [None]
  - OFF LABEL USE [None]
